FAERS Safety Report 9893596 (Version 2)
Quarter: 2014Q1

REPORT INFORMATION
  Report Type: Spontaneous
  Country: US (occurrence: US)
  Receive Date: 20140213
  Receipt Date: 20140314
  Transmission Date: 20141002
  Serious: No
  Sender: FDA-Public Use
  Company Number: US-009507513-1402USA006448

PATIENT
  Sex: Female
  Weight: 60.32 kg

DRUGS (1)
  1. OXYTROL FOR WOMEN [Suspect]
     Indication: URINARY INCONTINENCE
     Dosage: 1 DF, Q4D
     Route: 062
     Dates: start: 20131210

REACTIONS (3)
  - Drug administration error [Unknown]
  - Drug effect decreased [Unknown]
  - Product packaging issue [Unknown]
